FAERS Safety Report 10211146 (Version 2)
Quarter: 2014Q2

REPORT INFORMATION
  Report Type: Spontaneous
  Country: JP (occurrence: JP)
  Receive Date: 20140602
  Receipt Date: 20140630
  Transmission Date: 20141212
  Serious: Yes (Life-Threatening, Hospitalization, Other)
  Sender: FDA-Public Use
  Company Number: JP-B.I. PHARMACEUTICALS,INC./RIDGEFIELD-2014-BI-24402GD

PATIENT
  Age: 40 Year
  Sex: Female
  Weight: 82.5 kg

DRUGS (7)
  1. MICARDIS [Suspect]
     Indication: ESSENTIAL HYPERTENSION
     Dosage: 80 MG
     Route: 065
     Dates: start: 200908, end: 201109
  2. MICARDIS [Suspect]
     Dosage: 40 MG
     Route: 065
     Dates: start: 201109, end: 20111012
  3. AMLODIPINE [Concomitant]
     Indication: ESSENTIAL HYPERTENSION
     Dosage: 10 MG
     Route: 065
  4. HYSERENIN [Concomitant]
     Indication: BIPOLAR DISORDER
     Dosage: 400 MG
     Route: 048
     Dates: end: 20111002
  5. RISPERIDONE [Concomitant]
     Indication: BIPOLAR DISORDER
     Dosage: 1 MG
     Route: 048
     Dates: end: 20111002
  6. NORVASC [Concomitant]
     Indication: ESSENTIAL HYPERTENSION
     Dosage: 10 MG
     Route: 048
     Dates: start: 200711, end: 20111002
  7. APRESOLINE [Concomitant]
     Indication: HYPERTENSIVE NEPHROPATHY
     Dosage: 30 MG
     Route: 048
     Dates: start: 20111008, end: 20111212

REACTIONS (5)
  - Cushing^s syndrome [Recovered/Resolved]
  - Adrenal neoplasm [Recovered/Resolved]
  - Hypertensive nephropathy [Recovered/Resolved]
  - Foetal death [Recovered/Resolved]
  - Gestational diabetes [Recovered/Resolved]
